FAERS Safety Report 9456270 (Version 2)
Quarter: 2013Q3

REPORT INFORMATION
  Report Type: Report from Study
  Country: US (occurrence: US)
  Receive Date: 20130813
  Receipt Date: 20130822
  Transmission Date: 20140515
  Serious: Yes (Hospitalization)
  Sender: FDA-Public Use
  Company Number: US-ACTELION-A-NJ2013-85590

PATIENT
  Age: 80 Year
  Sex: Male

DRUGS (3)
  1. TRACLEER [Suspect]
     Indication: PULMONARY ARTERIAL HYPERTENSION
     Dosage: UNK
     Route: 048
     Dates: start: 20090121
  2. COUMADIN [Concomitant]
  3. PLAVIX [Concomitant]

REACTIONS (6)
  - Gastric ulcer haemorrhage [Recovering/Resolving]
  - Haemorrhage [Recovered/Resolved]
  - Haemoglobin decreased [Recovered/Resolved]
  - Heart valve incompetence [Recovered/Resolved]
  - Myocardial infarction [Recovering/Resolving]
  - Dyspnoea [Recovered/Resolved]
